FAERS Safety Report 7867268-0 (Version None)
Quarter: 2011Q4

REPORT INFORMATION
  Report Type: 
  Country: None (occurrence: None)
  Receive Date: 20111028
  Receipt Date: 20111020
  Transmission Date: 20120403
  Serious: Yes (Hospitalization)
  Sender: FDA-Public Use
  Company Number: US-US-EMD SERONO, INC.-7084303

PATIENT
  Sex: Female
  Weight: 56 kg

DRUGS (2)
  1. REBIF [Suspect]
     Indication: MULTIPLE SCLEROSIS
     Route: 058
     Dates: start: 20071202
  2. REBIF [Suspect]

REACTIONS (3)
  - DEHYDRATION [None]
  - MULTIPLE SCLEROSIS [None]
  - GASTROENTERITIS VIRAL [None]
